FAERS Safety Report 17109251 (Version 3)
Quarter: 2020Q2

REPORT INFORMATION
  Report Type: Report from Study
  Country: None (occurrence: BR)
  Receive Date: 20191204
  Receipt Date: 20200406
  Transmission Date: 20200713
  Serious: Yes (Other)
  Sender: FDA-Public Use
  Company Number: BR-ABBVIE-19K-020-3174811-00

PATIENT
  Sex: Male
  Weight: 120 kg

DRUGS (11)
  1. HUMIRA [Suspect]
     Active Substance: ADALIMUMAB
     Route: 058
  2. AAS [Concomitant]
     Active Substance: ASPIRIN
     Indication: CARDIAC DISORDER
  3. AAS [Concomitant]
     Active Substance: ASPIRIN
     Indication: ANTICOAGULANT THERAPY
  4. DAFLON [Concomitant]
     Indication: CARDIAC DISORDER
  5. LOSARTAN. [Concomitant]
     Active Substance: LOSARTAN
     Indication: HYPERTENSION
  6. HUMIRA [Suspect]
     Active Substance: ADALIMUMAB
     Indication: PSORIASIS
     Dosage: BEFORE 2019.
     Route: 058
  7. OMEPRAZOLE. [Concomitant]
     Active Substance: OMEPRAZOLE
     Indication: GASTRIC ULCER
  8. IMIPRAMINE [Concomitant]
     Active Substance: IMIPRAMINE
     Indication: ANXIETY
  9. CARVEDILOL. [Concomitant]
     Active Substance: CARVEDILOL
     Indication: PRODUCT USED FOR UNKNOWN INDICATION
  10. DIUREX [Concomitant]
     Indication: HYPERTENSION
  11. SINVASTATINA [Concomitant]
     Active Substance: SIMVASTATIN
     Indication: ANXIETY
     Dosage: ALTERNATE USE WITH IMIPRAMINE

REACTIONS (6)
  - Therapeutic response shortened [Recovering/Resolving]
  - Bone operation [Unknown]
  - Drug ineffective [Unknown]
  - Psoriasis [Unknown]
  - Mobility decreased [Unknown]
  - Musculoskeletal disorder [Unknown]
